FAERS Safety Report 13918285 (Version 2)
Quarter: 2018Q2

REPORT INFORMATION
  Report Type: Report from Study
  Country: US (occurrence: US)
  Receive Date: 20170829
  Receipt Date: 20180614
  Transmission Date: 20180711
  Serious: Yes (Other)
  Sender: FDA-Public Use
  Company Number: US-SA-2017SA098035

PATIENT
  Age: 24 Year
  Sex: Female

DRUGS (1)
  1. AGALSIDASE BETA [Suspect]
     Active Substance: AGALSIDASE BETA
     Indication: FABRY^S DISEASE
     Dosage: 1 MG/KG,QOW
     Route: 041
     Dates: start: 20170315

REACTIONS (7)
  - Malaise [Recovering/Resolving]
  - Parathyroid disorder [Unknown]
  - Migraine [Unknown]
  - Neuropathy peripheral [Unknown]
  - Food poisoning [Recovering/Resolving]
  - Abdominal discomfort [Unknown]
  - Infusion related reaction [Unknown]

NARRATIVE: CASE EVENT DATE: 20170509
